FAERS Safety Report 19928499 (Version 1)
Quarter: 2021Q4

REPORT INFORMATION
  Report Type: Spontaneous
  Country: JP (occurrence: JP)
  Receive Date: 20211007
  Receipt Date: 20211007
  Transmission Date: 20220303
  Serious: Yes (Hospitalization)
  Sender: FDA-Public Use
  Company Number: JP-CHUGAI-2021021042

PATIENT

DRUGS (3)
  1. AVASTIN [Suspect]
     Active Substance: BEVACIZUMAB
     Indication: Rectal cancer
     Dosage: 7.5 MILLIGRAM/KILOGRAM, ONCE/2WEEKS
     Route: 041
     Dates: start: 20210927
  2. FLUOROURACIL [Suspect]
     Active Substance: FLUOROURACIL
     Indication: Rectal cancer
     Dosage: 100 MILLIGRAM/SQ. METER, SINGLE
     Route: 040
     Dates: start: 20210927, end: 20210927
  3. FLUOROURACIL [Suspect]
     Active Substance: FLUOROURACIL
     Dosage: 100 MILLIGRAM/SQ. METER, SINGLE
     Route: 041
     Dates: start: 20210927, end: 20210927

REACTIONS (1)
  - Hyperammonaemia [Recovering/Resolving]

NARRATIVE: CASE EVENT DATE: 20210927
